FAERS Safety Report 12165779 (Version 1)
Quarter: 2016Q1

REPORT INFORMATION
  Report Type: Report from Study
  Country: US (occurrence: US)
  Receive Date: 20160309
  Receipt Date: 20160309
  Transmission Date: 20160526
  Serious: Yes (Hospitalization)
  Sender: FDA-Public Use
  Company Number: US-BIOGEN-2014BI035126

PATIENT
  Age: 44 Year
  Sex: Female

DRUGS (3)
  1. AVONEX [Suspect]
     Active Substance: INTERFERON BETA-1A
     Route: 030
     Dates: start: 201207
  2. AVONEX [Suspect]
     Active Substance: INTERFERON BETA-1A
     Indication: MULTIPLE SCLEROSIS
     Route: 030
     Dates: start: 20120802, end: 20130111
  3. AVONEX [Suspect]
     Active Substance: INTERFERON BETA-1A
     Route: 030
     Dates: start: 201310, end: 20140118

REACTIONS (12)
  - Ovarian cyst ruptured [Recovered/Resolved]
  - Dermatitis contact [Not Recovered/Not Resolved]
  - Injection site pain [Recovered/Resolved]
  - Swelling face [Recovered/Resolved]
  - Hiatus hernia [Not Recovered/Not Resolved]
  - Drug hypersensitivity [Unknown]
  - Appendicitis [Recovered/Resolved]
  - Tooth abscess [Recovered/Resolved]
  - Flank pain [Unknown]
  - Conjunctivitis [Recovered/Resolved]
  - Autoimmune disorder [Recovered/Resolved]
  - Crying [Not Recovered/Not Resolved]

NARRATIVE: CASE EVENT DATE: 2013
